FAERS Safety Report 7245786-6 (Version None)
Quarter: 2011Q1

REPORT INFORMATION
  Report Type: 
  Country: None (occurrence: None)
  Receive Date: 20110126
  Receipt Date: 20110121
  Transmission Date: 20110831
  Serious: Yes (Death)
  Sender: FDA-Public Use
  Company Number: JP-CEPHALON-2011000409

PATIENT
  Age: 74 Year
  Sex: Female

DRUGS (1)
  1. BENDAMUSTINE HCL [Suspect]
     Indication: MANTLE CELL LYMPHOMA
     Route: 041
     Dates: start: 20101216, end: 20101217

REACTIONS (3)
  - LUNG INFILTRATION MALIGNANT [None]
  - PNEUMOCYSTIS JIROVECI PNEUMONIA [None]
  - LYMPHOMA [None]
